FAERS Safety Report 8770170 (Version 3)
Quarter: 2013Q3

REPORT INFORMATION
  Report Type: Report from Study
  Country: IE (occurrence: IE)
  Receive Date: 20120905
  Receipt Date: 20130729
  Transmission Date: 20140515
  Serious: Yes (Other)
  Sender: FDA-Public Use
  Company Number: IE-US-EMD SERONO, INC.-7158867

PATIENT
  Age: 42 Year
  Sex: Female

DRUGS (1)
  1. REBIF [Suspect]
     Indication: RELAPSING-REMITTING MULTIPLE SCLEROSIS
     Route: 058
     Dates: start: 20060410

REACTIONS (1)
  - Lower respiratory tract infection [Recovered/Resolved]
